FAERS Safety Report 17591637 (Version 1)
Quarter: 2020Q1

REPORT INFORMATION
  Report Type: Spontaneous
  Country: US (occurrence: US)
  Receive Date: 20200326
  Receipt Date: 20200326
  Transmission Date: 20200409
  Serious: Yes (Hospitalization)
  Sender: FDA-Public Use
  Company Number: None

PATIENT
  Sex: Male

DRUGS (1)
  1. EPCLUSA [Suspect]
     Active Substance: SOFOSBUVIR\VELPATASVIR
     Indication: HEPATITIS VIRAL
     Dosage: ?          OTHER DOSE:400-100MG;?
     Route: 048
     Dates: start: 20200304

REACTIONS (2)
  - Surgery [None]
  - Cardiac pacemaker insertion [None]
